FAERS Safety Report 13304564 (Version 1)
Quarter: 2017Q1

REPORT INFORMATION
  Report Type: Spontaneous
  Country: US (occurrence: US)
  Receive Date: 20170307
  Receipt Date: 20170307
  Transmission Date: 20170428
  Serious: No
  Sender: FDA-Public Use
  Company Number: None

PATIENT
  Age: 72 Year
  Sex: Male
  Weight: 57 kg

DRUGS (4)
  1. NAPROXEN. [Suspect]
     Active Substance: NAPROXEN
     Indication: ABDOMINAL PAIN
     Dosage: DOSE AMOUNT - MG
     Route: 048
     Dates: start: 20170130, end: 20170209
  2. NAPROXEN. [Suspect]
     Active Substance: NAPROXEN
     Indication: OEDEMA
     Dosage: DOSE AMOUNT - MG
     Route: 048
     Dates: start: 20170130, end: 20170209
  3. NAPROXEN. [Suspect]
     Active Substance: NAPROXEN
     Indication: CARDIAC FAILURE CONGESTIVE
     Dosage: DOSE AMOUNT - MG
     Route: 048
     Dates: start: 20170130, end: 20170209
  4. NAPROXEN. [Suspect]
     Active Substance: NAPROXEN
     Indication: DYSPNOEA
     Dosage: DOSE AMOUNT - MG
     Route: 048
     Dates: start: 20170130, end: 20170209

REACTIONS (5)
  - Abdominal discomfort [None]
  - Abdominal pain upper [None]
  - Dyspnoea [None]
  - Peripheral swelling [None]
  - Abdominal pain [None]

NARRATIVE: CASE EVENT DATE: 20170209
